FAERS Safety Report 16087384 (Version 1)
Quarter: 2019Q1

REPORT INFORMATION
  Report Type: Spontaneous
  Country: US (occurrence: US)
  Receive Date: 20190319
  Receipt Date: 20190319
  Transmission Date: 20190418
  Serious: Yes (Hospitalization, Other)
  Sender: FDA-Public Use
  Company Number: US-LUPIN PHARMACEUTICALS INC.-2018-02518

PATIENT
  Age: 44 Year
  Sex: Female

DRUGS (14)
  1. VENLAFAXINE [Interacting]
     Active Substance: VENLAFAXINE HYDROCHLORIDE
     Indication: MAJOR DEPRESSION
     Dosage: 37.5 MG, QD (EXTENDED RELEASE) TITRATED
     Route: 048
  2. VENLAFAXINE [Interacting]
     Active Substance: VENLAFAXINE HYDROCHLORIDE
     Dosage: 37.5 MG, QD (EXTENDED RELEASE)
     Route: 048
  3. PYRIDOXINE [Concomitant]
     Active Substance: PYRIDOXINE
     Indication: DISSEMINATED TUBERCULOSIS
     Dosage: 50 MILLIGRAM, QD
     Route: 065
  4. GABAPENTIN. [Concomitant]
     Active Substance: GABAPENTIN
     Indication: BONE TUBERCULOSIS
  5. BACLOFEN. [Concomitant]
     Active Substance: BACLOFEN
     Indication: BONE TUBERCULOSIS
  6. VENLAFAXINE [Interacting]
     Active Substance: VENLAFAXINE HYDROCHLORIDE
     Dosage: 75 MG, QD (EXTENDED RELEASE)
     Route: 048
  7. BACLOFEN. [Concomitant]
     Active Substance: BACLOFEN
     Indication: BACK PAIN
     Dosage: 10 MILLIGRAM, TID
     Route: 065
  8. TRAMADOL. [Concomitant]
     Active Substance: TRAMADOL
     Indication: BACK PAIN
     Dosage: 50 MILLIGRAM, PRN (50 MG EVERY 6 HOURS AS NEEDED)
     Route: 065
  9. MIRTAZAPINE. [Interacting]
     Active Substance: MIRTAZAPINE
     Dosage: 30 MILLIGRAM, QD
     Route: 065
  10. LEVOFLOXACIN. [Interacting]
     Active Substance: LEVOFLOXACIN
     Indication: DISSEMINATED TUBERCULOSIS
     Dosage: 750 MILLIGRAM, QD
     Route: 065
  11. GABAPENTIN. [Concomitant]
     Active Substance: GABAPENTIN
     Indication: BACK PAIN
     Dosage: 1200 MILLIGRAM, TID
     Route: 065
  12. MIRTAZAPINE. [Interacting]
     Active Substance: MIRTAZAPINE
     Indication: MAJOR DEPRESSION
     Dosage: 15 MILLIGRAM, QD
     Route: 065
  13. ISONIAZID. [Interacting]
     Active Substance: ISONIAZID
     Indication: DISSEMINATED TUBERCULOSIS
     Dosage: 750 MILLIGRAM, QD
     Route: 065
  14. RIFAMPIN. [Suspect]
     Active Substance: RIFAMPIN
     Indication: DISSEMINATED TUBERCULOSIS
     Dosage: 900 MILLIGRAM, QD
     Route: 065

REACTIONS (5)
  - Focal dyscognitive seizures [Recovered/Resolved]
  - Weight increased [Unknown]
  - Mood altered [Recovering/Resolving]
  - Drug interaction [Unknown]
  - Condition aggravated [Recovering/Resolving]
